FAERS Safety Report 14310802 (Version 1)
Quarter: 2017Q4

REPORT INFORMATION
  Report Type: Spontaneous
  Country: NL (occurrence: NL)
  Receive Date: 20171220
  Receipt Date: 20171220
  Transmission Date: 20180321
  Serious: Yes (Other)
  Sender: FDA-Public Use
  Company Number: NL-TEVA-2017-NL-837671

PATIENT
  Sex: Male

DRUGS (4)
  1. PRALUENT [Interacting]
     Active Substance: ALIROCUMAB
     Route: 058
     Dates: start: 201708
  2. IMURAN [Interacting]
     Active Substance: AZATHIOPRINE
     Route: 048
  3. PREDNISONE. [Suspect]
     Active Substance: PREDNISONE
     Route: 065
  4. ALIROCUMAB [Interacting]
     Active Substance: ALIROCUMAB
     Dates: start: 201708

REACTIONS (3)
  - Cardiac failure [Unknown]
  - Condition aggravated [Unknown]
  - Drug interaction [Unknown]

NARRATIVE: CASE EVENT DATE: 2017
